FAERS Safety Report 5414975-5 (Version None)
Quarter: 2007Q3

REPORT INFORMATION
  Report Type: 
  Country: None (occurrence: None)
  Receive Date: 20070813
  Receipt Date: 20070705
  Transmission Date: 20080115
  Serious: Yes (Hospitalization)
  Sender: FDA-Public Use
  Company Number: 2007RR-08455

PATIENT
  Age: 40 Year
  Sex: Female

DRUGS (4)
  1. AMLODIPINE MALEATE [Suspect]
     Dosage: 5 MG, QD, ORAL
     Route: 048
  2. GLIPIZIDE [Concomitant]
  3. RANITIDINE [Concomitant]
  4. SALINE (SALINE) [Concomitant]

REACTIONS (15)
  - ABDOMINAL PAIN [None]
  - BRADYCARDIA [None]
  - CARDIAC OUTPUT DECREASED [None]
  - DIASTOLIC DYSFUNCTION [None]
  - DRUG TOXICITY [None]
  - ELECTROCARDIOGRAM QT PROLONGED [None]
  - GASTROINTESTINAL SOUNDS ABNORMAL [None]
  - HYPOTENSION [None]
  - INTENTIONAL OVERDOSE [None]
  - LOSS OF CONSCIOUSNESS [None]
  - MENTAL STATUS CHANGES [None]
  - NAUSEA [None]
  - SUICIDE ATTEMPT [None]
  - TACHYCARDIA [None]
  - VOMITING [None]
